FAERS Safety Report 6157994-6 (Version None)
Quarter: 2009Q2

REPORT INFORMATION
  Report Type: 
  Country: None (occurrence: None)
  Receive Date: 20090417
  Receipt Date: 20090406
  Transmission Date: 20091009
  Serious: Yes (Death)
  Sender: FDA-Public Use
  Company Number: DE-PFIZER INC-2009196429

PATIENT

DRUGS (7)
  1. ARGATROBAN [Suspect]
     Indication: HEPARIN-INDUCED THROMBOCYTOPENIA
     Dosage: 0.35UG/KG/MIN
     Route: 042
     Dates: start: 20090127, end: 20090207
  2. ARGATROBAN [Suspect]
     Dosage: 0.09UG/KG/MIN
     Dates: start: 20090207, end: 20090207
  3. DAPTOMYCIN [Concomitant]
     Dosage: 500 MG, 1X/DAY
     Dates: start: 20090130
  4. PRIMAXIN [Concomitant]
     Dosage: 1 G, 2X/DAY
     Dates: start: 20090205
  5. ATENOLOL [Concomitant]
  6. DOBUTREX [Concomitant]
  7. COROTROP [Concomitant]

REACTIONS (6)
  - AORTIC VALVE REPLACEMENT [None]
  - CARDIOPULMONARY FAILURE [None]
  - CORONARY ARTERY BYPASS [None]
  - INTESTINAL ISCHAEMIA [None]
  - MULTI-ORGAN FAILURE [None]
  - SEPSIS [None]
